FAERS Safety Report 5017221-X (Version None)
Quarter: 2006Q2

REPORT INFORMATION
  Report Type: 
  Country: None (occurrence: None)
  Receive Date: 20060602
  Receipt Date: 20060328
  Transmission Date: 20061013
  Serious: Yes (Hospitalization)
  Sender: FDA-Public Use
  Company Number: FR-ABBOTT-06P-056-0329736-00

PATIENT
  Sex: Male
  Weight: 52 kg

DRUGS (10)
  1. KALETRA [Suspect]
     Indication: HIV INFECTION
     Dosage: 500MG/100MG
     Route: 048
     Dates: start: 20050725, end: 20060313
  2. KALETRA [Suspect]
     Dosage: 400MG/100MG
     Route: 048
     Dates: start: 20060316
  3. KALETRA [Suspect]
     Route: 048
     Dates: start: 20050725
  4. TENOFOVIR [Concomitant]
     Indication: HIV INFECTION
     Dates: start: 20031030, end: 20060313
  5. DIDANOSINE [Concomitant]
     Indication: HIV INFECTION
     Dates: start: 20031030, end: 20060316
  6. ATOVAQUONE [Concomitant]
     Indication: PNEUMOCYSTIS JIROVECI INFECTION
     Route: 048
  7. PARACETAMOL [Concomitant]
     Indication: HEADACHE
     Route: 048
     Dates: start: 20051101
  8. ECONAZOLE NITRATE [Concomitant]
     Indication: FUNGAL SKIN INFECTION
     Route: 058
     Dates: start: 20060111
  9. PAROXETINE HYDROCHLORIDE [Concomitant]
     Indication: DEPRESSION
     Route: 048
     Dates: start: 20060202
  10. EPZICOM [Concomitant]
     Indication: DRUG USE FOR UNKNOWN INDICATION
     Dates: start: 20060317

REACTIONS (3)
  - HYPERTENSION [None]
  - RENAL FAILURE [None]
  - WEIGHT DECREASED [None]
